FAERS Safety Report 24816196 (Version 3)
Quarter: 2025Q2

REPORT INFORMATION
  Report Type: Spontaneous
  Country: TR (occurrence: TR)
  Receive Date: 20250107
  Receipt Date: 20250502
  Transmission Date: 20250717
  Serious: Yes (Other)
  Sender: NOVARTIS
  Company Number: TR-002147023-NVSC2021TR318521

PATIENT
  Age: 16 Year
  Sex: Female
  Weight: 89 kg

DRUGS (8)
  1. TEGRETOL [Suspect]
     Active Substance: CARBAMAZEPINE
     Indication: Epilepsy
     Dosage: 10 MG
     Route: 048
  2. TEGRETOL [Suspect]
     Active Substance: CARBAMAZEPINE
     Dosage: 15 MG, TID
     Route: 048
  3. TEGRETOL [Suspect]
     Active Substance: CARBAMAZEPINE
     Dosage: 20 ML, BID (SINCE THE PATIENT WAS BORN)
     Route: 048
  4. TEGRETOL [Suspect]
     Active Substance: CARBAMAZEPINE
     Route: 048
  5. TEGRETOL [Suspect]
     Active Substance: CARBAMAZEPINE
     Indication: Epilepsy
     Route: 065
  6. CLOBAZAM [Concomitant]
     Active Substance: CLOBAZAM
     Indication: Epilepsy
     Dosage: 1.5 DOSAGE FORM, BID
     Route: 065
     Dates: start: 20210707
  7. LAMICTAL [Concomitant]
     Active Substance: LAMOTRIGINE
     Indication: Product used for unknown indication
     Route: 065
  8. Rivoclon [Concomitant]
     Indication: Product used for unknown indication
     Route: 065

REACTIONS (26)
  - Movement disorder [Not Recovered/Not Resolved]
  - Seizure [Not Recovered/Not Resolved]
  - Epilepsy [Not Recovered/Not Resolved]
  - Amenorrhoea [Not Recovered/Not Resolved]
  - Syncope [Not Recovered/Not Resolved]
  - Gait inability [Not Recovered/Not Resolved]
  - Inability to crawl [Unknown]
  - Peripheral vascular disorder [Unknown]
  - Muscle contractions involuntary [Unknown]
  - Product supply issue [Not Recovered/Not Resolved]
  - Wrong technique in product usage process [Unknown]
  - Sleep disorder [Unknown]
  - Dysphagia [Unknown]
  - Foaming at mouth [Not Recovered/Not Resolved]
  - Skin swelling [Unknown]
  - Full blood count abnormal [Unknown]
  - Skin exfoliation [Unknown]
  - Off label use [Not Recovered/Not Resolved]
  - Drug ineffective [Unknown]
  - Haemorrhage [Unknown]
  - Pain [Not Recovered/Not Resolved]
  - Cyanosis [Unknown]
  - Full blood count decreased [Not Recovered/Not Resolved]
  - Anger [Unknown]
  - Abdominal distension [Unknown]
  - Oligomenorrhoea [Unknown]

NARRATIVE: CASE EVENT DATE: 20220704
